FAERS Safety Report 5376597-4 (Version None)
Quarter: 2007Q2

REPORT INFORMATION
  Report Type: 
  Country: None (occurrence: None)
  Receive Date: 20070629
  Receipt Date: 20070619
  Transmission Date: 20071010
  Serious: Yes (Hospitalization, Disabling)
  Sender: FDA-Public Use
  Company Number: OSCN-NO-0706S-0267

PATIENT
  Sex: Male

DRUGS (1)
  1. OMNISCAN [Suspect]
     Indication: DRUG USE FOR UNKNOWN INDICATION
     Dosage: I.V.
     Route: 042
     Dates: start: 20030101

REACTIONS (4)
  - GAIT DISTURBANCE [None]
  - GRIP STRENGTH DECREASED [None]
  - NEPHROGENIC FIBROSING DERMOPATHY [None]
  - RASH [None]
